FAERS Safety Report 11734203 (Version 2)
Quarter: 2015Q4

REPORT INFORMATION
  Report Type: Spontaneous
  Country: PT (occurrence: PT)
  Receive Date: 20151113
  Receipt Date: 20151224
  Transmission Date: 20160304
  Serious: Yes (Other)
  Sender: FDA-Public Use
  Company Number: PT-ACTAVIS-2015-24320

PATIENT
  Age: 61 Year
  Sex: Female
  Weight: 58 kg

DRUGS (8)
  1. PREDNISOLONA                       /00016201/ [Concomitant]
     Indication: ALLERGY PROPHYLAXIS
     Dosage: UNK (PART OF THE PRE-MEDICATION REGIMEN PRIOR TO EACH TREATMENT CYCLE.)
     Route: 048
     Dates: start: 201509, end: 201510
  2. CISPLATINA TEVA [Concomitant]
     Active Substance: CISPLATIN
     Indication: LUNG NEOPLASM MALIGNANT
     Dosage: 120 MG, 1/ THREE WEEKS (CISPLATIN WAS ADMINISTERED IN 2 CYCLES. IT IS UNKNOWN IF THE DOSAGE AND BATC
     Route: 042
     Dates: start: 20150930, end: 20150930
  3. CLEMASTINA [Concomitant]
     Indication: ALLERGY PROPHYLAXIS
     Dosage: UNK  (PART OF THE PRE-MEDICATION REGIMEN PRIOR TO EACH TREATMENT CYCLE.)
     Route: 048
     Dates: start: 201509, end: 201510
  4. DOCETAXEL ACTAVIS [Suspect]
     Active Substance: DOCETAXEL
     Indication: LUNG NEOPLASM MALIGNANT
     Dosage: 120 MG, 1/ THREE WEEKS (THIS ADMINISTRATION CORRESPONDS TO THE 2ND AND 3RD TREATMENT CYCLE.)
     Route: 042
     Dates: start: 20151021, end: 20151111
  5. DEXAMETASONA                       /00016001/ [Concomitant]
     Indication: ALLERGY PROPHYLAXIS
     Dosage: 10 MG, DAILY  (PART OF THE PRE-MEDICATION REGIMEN PRIOR TO EACH TREATMENT CYCLE.)
     Route: 042
     Dates: start: 20150930, end: 20151021
  6. IVEMEND [Concomitant]
     Active Substance: FOSAPREPITANT DIMEGLUMINE
     Indication: PROPHYLAXIS OF NAUSEA AND VOMITING
     Dosage: UNK (PART OF THE TREATMENT PROTOCOL: MAGNESIUM SULFATE, FOSAPREPIPANT, DOCETAXEL, CISPLATIN)
     Route: 042
     Dates: start: 20150930, end: 20151021
  7. DOCETAXEL HOSPIRA [Suspect]
     Active Substance: DOCETAXEL
     Indication: LUNG NEOPLASM MALIGNANT
     Dosage: 120 MG, 1/ THREE WEEKS (THIS ADMINISTRATION CORRESPONDS TO THE 1ST TREATMENT CYCLE.)
     Route: 042
     Dates: start: 20150930, end: 20150930
  8. MAGNESIUM SULPHATE                 /07507001/ [Concomitant]
     Active Substance: MAGNESIUM SULFATE
     Indication: LUNG NEOPLASM MALIGNANT
     Dosage: UNK (PART OF THE TREATMENT PROTOCOL: MAGNESIUM SULFATE, FOSAPREPIPANT, DOCETAXEL, CISPLATIN)
     Route: 042
     Dates: start: 20150930, end: 20151021

REACTIONS (14)
  - Drug hypersensitivity [Recovered/Resolved]
  - Back pain [Recovered/Resolved]
  - Chest pain [Recovered/Resolved]
  - Injection site pruritus [Recovering/Resolving]
  - Back pain [Recovered/Resolved]
  - Drug hypersensitivity [Recovered/Resolved]
  - Injection site discolouration [Recovering/Resolving]
  - Chemical burn of skin [Recovering/Resolving]
  - Respiratory distress [Recovered/Resolved]
  - Acne [Recovering/Resolving]
  - Erythema [Recovered/Resolved]
  - Malaise [Recovered/Resolved]
  - Cough [Recovered/Resolved]
  - Injection site erythema [Recovering/Resolving]

NARRATIVE: CASE EVENT DATE: 20150930
